FAERS Safety Report 4577542-1 (Version None)
Quarter: 2005Q1

REPORT INFORMATION
  Report Type: 
  Country: None (occurrence: None)
  Receive Date: 20050208
  Receipt Date: 20050202
  Transmission Date: 20050727
  Serious: Yes (Life-Threatening, Hospitalization)
  Sender: FDA-Public Use
  Company Number: 2005GB00228

PATIENT
  Age: 55 Year

DRUGS (6)
  1. CRESTOR [Suspect]
     Indication: BLOOD CHOLESTEROL INCREASED
     Dosage: 40 MG DAILY PO
     Route: 048
     Dates: start: 20030401, end: 20041201
  2. CRESTOR [Suspect]
     Indication: BLOOD CHOLESTEROL INCREASED
     Dosage: DOSE REDUCED
     Dates: start: 20041201
  3. ASPIRIN [Concomitant]
  4. ESOMEPRAZOLE [Concomitant]
  5. THIAMINE [Concomitant]
  6. PENICILLIN G [Concomitant]

REACTIONS (4)
  - CONDITION AGGRAVATED [None]
  - HAEMODIALYSIS [None]
  - NEPHRITIS INTERSTITIAL [None]
  - RENAL FAILURE [None]
